FAERS Safety Report 7747138-9 (Version None)
Quarter: 2011Q3

REPORT INFORMATION
  Report Type: 
  Country: None (occurrence: None)
  Receive Date: 20110909
  Receipt Date: 20110901
  Transmission Date: 20111222
  Serious: Yes (Other)
  Sender: FDA-Public Use
  Company Number: 201108068

PATIENT
  Age: 77 Year
  Sex: Male

DRUGS (3)
  1. CRESTOR [Concomitant]
  2. XIAFLEX [Suspect]
     Indication: DUPUYTREN'S CONTRACTURE
     Dosage: 1 IN 1 D; INTRALESIONAL; 1 IN 1 D, INTRALESIONAL
     Route: 026
     Dates: start: 20110824, end: 20110824
  3. XIAFLEX [Suspect]
     Indication: DUPUYTREN'S CONTRACTURE
     Dosage: 1 IN 1 D; INTRALESIONAL; 1 IN 1 D, INTRALESIONAL
     Route: 026
     Dates: start: 20110601, end: 20110601

REACTIONS (2)
  - SKIN GRAFT [None]
  - INJECTION SITE LACERATION [None]
